FAERS Safety Report 9537461 (Version 2)
Quarter: 2014Q1

REPORT INFORMATION
  Report Type: Spontaneous
  Country: US (occurrence: US)
  Receive Date: 20130919
  Receipt Date: 20140129
  Transmission Date: 20141002
  Serious: Yes (Death)
  Sender: FDA-Public Use
  Company Number: US-GLAXOSMITHKLINE-A1042148A

PATIENT
  Age: 80 Year
  Sex: Male

DRUGS (1)
  1. HYCAMTIN [Suspect]
     Indication: TRACHEAL CANCER
     Dosage: 1MG UNKNOWN
     Route: 048

REACTIONS (3)
  - Death [Fatal]
  - Malignant neoplasm progression [Not Recovered/Not Resolved]
  - Bone pain [Not Recovered/Not Resolved]
